FAERS Safety Report 8847221 (Version 1)
Quarter: 2012Q4

REPORT INFORMATION
  Report Type: 
  Country: BR (occurrence: BR)
  Receive Date: 20121018
  Receipt Date: 20121018
  Transmission Date: 20130627
  Serious: Yes (Death, Hospitalization)
  Sender: FDA-Public Use
  Company Number: PHHY2012BR092259

PATIENT
  Age: 71 Year
  Sex: Female

DRUGS (4)
  1. FORASEQ [Suspect]
     Indication: DYSPNOEA
     Dosage: 1 DF, BID
  2. PURAN T4 [Concomitant]
     Indication: THYROID DISORDER
     Dosage: 25 ug, QD
     Route: 048
  3. OXCARBAZEPINE [Concomitant]
     Indication: PETIT MAL EPILEPSY
     Dosage: 2 DF, BID
     Route: 048
  4. RIVOTRIL [Concomitant]
     Indication: PETIT MAL EPILEPSY

REACTIONS (12)
  - Cerebrovascular accident [Fatal]
  - Myocardial infarction [Fatal]
  - Pneumonia [Recovered/Resolved]
  - Back pain [Unknown]
  - Thrombosis [Unknown]
  - Oedema peripheral [Unknown]
  - Movement disorder [Unknown]
  - Haemorrhage [Recovered/Resolved]
  - General physical health deterioration [Unknown]
  - Platelet count decreased [Recovered/Resolved]
  - Nervousness [Recovered/Resolved]
  - Hypertension [Unknown]
